FAERS Safety Report 6522712-6 (Version None)
Quarter: 2009Q4

REPORT INFORMATION
  Report Type: 
  Country: None (occurrence: None)
  Receive Date: 20091222
  Receipt Date: 20091217
  Transmission Date: 20100525
  Serious: Yes (Death, Hospitalization)
  Sender: FDA-Public Use
  Company Number: GB-EBEWE-1953FLUORO09

PATIENT
  Age: 78 Year
  Sex: Male

DRUGS (7)
  1. FLUOROURACIL [Suspect]
     Indication: OESOPHAGEAL ADENOCARCINOMA
     Dosage: 1950 MG, Q24 HR, IV
     Route: 042
     Dates: start: 20041115, end: 20041119
  2. ASPIRIN [Concomitant]
  3. CISPLATIN [Concomitant]
  4. DEXAMETHASONE [Concomitant]
  5. INSULIN [Concomitant]
  6. ONDANSETRON [Concomitant]
  7. PRAVASTATIN [Concomitant]

REACTIONS (6)
  - ABDOMINAL TENDERNESS [None]
  - BONE MARROW FAILURE [None]
  - MUCOSAL INFLAMMATION [None]
  - NAUSEA [None]
  - SCROTAL OEDEMA [None]
  - VOMITING [None]
